FAERS Safety Report 5170025-X (Version None)
Quarter: 2006Q4

REPORT INFORMATION
  Report Type: 
  Country: None (occurrence: None)
  Receive Date: 20061212
  Receipt Date: 20061204
  Transmission Date: 20070319
  Serious: Yes (Life-Threatening, Hospitalization)
  Sender: FDA-Public Use
  Company Number: FR-ELI_LILLY_AND_COMPANY-FR200612000712

PATIENT
  Age: 80 Year
  Sex: Female
  Weight: 56 kg

DRUGS (10)
  1. GEMZAR [Suspect]
     Indication: PANCREATIC CARCINOMA METASTATIC
     Dosage: 1578 MG, OTHER
     Route: 042
     Dates: start: 20061003
  2. PRIMPERAN TAB [Concomitant]
     Dosage: 20 MG, DAILY (1/D)
     Route: 042
     Dates: start: 20061003
  3. SODIUM CHLORIDE [Concomitant]
     Dosage: 250 ML, OTHER
     Route: 065
     Dates: start: 20061003
  4. LOVENOX [Concomitant]
     Dosage: 0.4 ML, DAILY (1/D)
     Route: 058
     Dates: start: 20061003, end: 20061003
  5. TRAMADOL HCL [Concomitant]
     Route: 048
  6. INIPOMP [Concomitant]
     Route: 048
  7. ZOLPIDEM TARTRATE [Concomitant]
     Route: 048
  8. VASTAREL [Concomitant]
     Route: 048
  9. CETIRIZINE HCL [Concomitant]
     Route: 048
  10. CREON [Concomitant]
     Route: 048

REACTIONS (2)
  - CEREBROVASCULAR ACCIDENT [None]
  - THROMBOSIS [None]
